FAERS Safety Report 16908826 (Version 1)
Quarter: 2019Q4

REPORT INFORMATION
  Report Type: Report from Study
  Country: None (occurrence: GB)
  Receive Date: 20191011
  Receipt Date: 20191011
  Transmission Date: 20200122
  Serious: Yes (Other)
  Sender: FDA-Public Use
  Company Number: GB-ABBVIE-19K-167-2957612-00

PATIENT
  Sex: Female

DRUGS (2)
  1. HUMIRA [Suspect]
     Active Substance: ADALIMUMAB
     Indication: CROHN^S DISEASE
     Route: 058
  2. HUMIRA [Suspect]
     Active Substance: ADALIMUMAB
     Dosage: LOADING DOSE
     Route: 058
     Dates: start: 2019, end: 2019

REACTIONS (2)
  - Maternal exposure during pregnancy [Unknown]
  - Abortion spontaneous [Unknown]
